FAERS Safety Report 18666437 (Version 1)
Quarter: 2020Q4

REPORT INFORMATION
  Report Type: Spontaneous
  Country: US (occurrence: US)
  Receive Date: 20201227
  Receipt Date: 20201227
  Transmission Date: 20210114
  Serious: No
  Sender: FDA-Public Use
  Company Number: US-ASTRAZENECA-2020SF62013

PATIENT
  Sex: Male

DRUGS (1)
  1. FARXIGA [Suspect]
     Active Substance: DAPAGLIFLOZIN PROPANEDIOL
     Dosage: ONE INJECTION EVERY 10 DAYS
     Route: 048

REACTIONS (3)
  - Illness [Unknown]
  - Abdominal discomfort [Unknown]
  - Muscle atrophy [Unknown]
